FAERS Safety Report 25987578 (Version 2)
Quarter: 2025Q4

REPORT INFORMATION
  Report Type: Spontaneous
  Country: JP (occurrence: JP)
  Receive Date: 20251103
  Receipt Date: 20251106
  Transmission Date: 20260118
  Serious: Yes (Hospitalization)
  Sender: ASTELLAS
  Company Number: JP-ASTELLAS-2025-AER-058183

PATIENT
  Age: 77 Year
  Sex: Male

DRUGS (4)
  1. PADCEV [Suspect]
     Active Substance: ENFORTUMAB VEDOTIN-EJFV
     Indication: Product used for unknown indication
     Route: 042
  2. PEMBROLIZUMAB [Concomitant]
     Active Substance: PEMBROLIZUMAB
     Indication: Product used for unknown indication
     Route: 065
  3. CLOBETASOL PROPIONATE [Concomitant]
     Active Substance: CLOBETASOL PROPIONATE
     Indication: Infusion site extravasation
     Route: 065
     Dates: start: 20251016
  4. Rinderon injection [Concomitant]
     Indication: Infusion site vesicles
     Dosage: LOCAL INJECTION
     Route: 065
     Dates: start: 20251020

REACTIONS (6)
  - Infusion site extravasation [Recovering/Resolving]
  - Infusion site exfoliation [Not Recovered/Not Resolved]
  - Infusion site vesicles [Unknown]
  - Infusion site cellulitis [Unknown]
  - Tenderness [Unknown]
  - Erythema [Unknown]

NARRATIVE: CASE EVENT DATE: 20251016
